FAERS Safety Report 4679632-1 (Version None)
Quarter: 2005Q2

REPORT INFORMATION
  Report Type: 
  Country: None (occurrence: None)
  Receive Date: 20050602
  Receipt Date: 20041203
  Transmission Date: 20051028
  Serious: Yes (Hospitalization, Other)
  Sender: FDA-Public Use
  Company Number: GBWYE260406DEC04

PATIENT
  Sex: Female

DRUGS (4)
  1. ENBREL [Suspect]
     Indication: RHEUMATOID ARTHRITIS
     Dosage: UNKNOWN
     Route: 058
     Dates: start: 20041001, end: 20050201
  2. THYROXINE I 125 [Concomitant]
  3. CYANOCOBALAMIN [Concomitant]
  4. ARCOXIA [Concomitant]
     Dates: start: 20030201

REACTIONS (2)
  - OVARIAN CANCER [None]
  - RETINAL VEIN OCCLUSION [None]
